FAERS Safety Report 7953868-6 (Version None)
Quarter: 2011Q4

REPORT INFORMATION
  Report Type: 
  Country: None (occurrence: None)
  Receive Date: 20111202
  Receipt Date: 20111122
  Transmission Date: 20120403
  Serious: Yes (Hospitalization)
  Sender: FDA-Public Use
  Company Number: US-JNJFOC-20111111226

PATIENT
  Sex: Female

DRUGS (6)
  1. REMICADE [Suspect]
     Indication: INFLAMMATORY BOWEL DISEASE
     Route: 042
     Dates: start: 20110827
  2. BUDESONIDE [Suspect]
     Indication: PRODUCT USED FOR UNKNOWN INDICATION
  3. ALBUTEROL [Concomitant]
  4. FERROUS SULFATE TAB [Concomitant]
  5. PEPTAMEN [Concomitant]
     Dosage: DRUG REPORTED AS PEPTOMEN JUNIOR 1.5
  6. MESALAMINE [Suspect]
     Indication: PRODUCT USED FOR UNKNOWN INDICATION
     Route: 048

REACTIONS (1)
  - ILEAL STENOSIS [None]
